FAERS Safety Report 4667154-3 (Version None)
Quarter: 2005Q2

REPORT INFORMATION
  Report Type: 
  Country: None (occurrence: None)
  Receive Date: 20050520
  Receipt Date: 20040607
  Transmission Date: 20051028
  Serious: Yes (Other)
  Sender: FDA-Public Use
  Company Number: PHEH2004US06313

PATIENT
  Age: 76 Year
  Sex: Male

DRUGS (13)
  1. ZOMETA [Suspect]
     Indication: MULTIPLE MYELOMA
     Dosage: 4 MG EVERY 4 WEEKS
     Route: 042
     Dates: start: 20020101, end: 20040401
  2. FLUNISOLIDE [Concomitant]
     Indication: NASAL CONGESTION
     Dosage: 25 MG, BID
  3. GLIPIZIDE [Concomitant]
     Indication: DIABETES MELLITUS
     Dosage: 10 MG, BID
  4. INSULIN [Concomitant]
     Indication: DIABETES MELLITUS
     Dosage: 5 UNITS BID
  5. LORATADINE [Concomitant]
     Indication: HYPERSENSITIVITY
  6. MELPHALAN [Concomitant]
     Indication: MULTIPLE MYELOMA
     Dosage: 4 CYCLES
     Dates: start: 19950501, end: 19950901
  7. MELPHALAN [Concomitant]
     Dosage: 14 MG QD X 3 DAYS EVERY MONTH
     Dates: start: 19980901, end: 20001101
  8. MELPHALAN [Concomitant]
     Dosage: 14 MG QD FOR 3 DAYS EVERY MONTH
     Dates: start: 20020701, end: 20031201
  9. MELPHALAN [Concomitant]
     Dosage: 14 MG QD FOR 3 DAYS EVERY MONTH
     Dates: start: 20040201, end: 20040401
  10. PREDNISONE TAB [Concomitant]
     Indication: MULTIPLE MYELOMA
     Dosage: 4 CYCLES
     Dates: start: 19950501, end: 19950901
  11. PREDNISONE TAB [Concomitant]
     Dosage: 60 MG QD FOR 7 DAYS EVERY MONTH
     Dates: start: 19980901, end: 20001101
  12. PREDNISONE TAB [Concomitant]
     Dosage: 60 MG QD FOR 7 DAYS EVERY MONTH
     Dates: start: 20020701, end: 20031201
  13. PREDNISONE TAB [Concomitant]
     Dosage: 60 MG QD FOR 7 DAYS EVERY MONTH
     Dates: start: 20040201, end: 20040401

REACTIONS (8)
  - ANAEMIA [None]
  - BONE DEBRIDEMENT [None]
  - BONE DISORDER [None]
  - IMPAIRED HEALING [None]
  - JAW DISORDER [None]
  - OSTEONECROSIS [None]
  - RADIOTHERAPY [None]
  - TOOTH EXTRACTION [None]
